FAERS Safety Report 7003734-8 (Version None)
Quarter: 2010Q3

REPORT INFORMATION
  Report Type: 
  Country: None (occurrence: None)
  Receive Date: 20100920
  Receipt Date: 20100104
  Transmission Date: 20110219
  Serious: No
  Sender: FDA-Public Use
  Company Number: US-WYE-H12359209

PATIENT
  Sex: Female
  Weight: 68.1 kg

DRUGS (6)
  1. PRISTIQ [Suspect]
     Indication: DEPRESSION
     Route: 048
     Dates: start: 20091001
  2. LIPITOR [Concomitant]
  3. LANTUS [Concomitant]
  4. METFORMIN [Concomitant]
  5. METOPROLOL [Concomitant]
  6. LISINOPRIL [Concomitant]

REACTIONS (1)
  - HYPERHIDROSIS [None]
